FAERS Safety Report 13887452 (Version 1)
Quarter: 2017Q3

REPORT INFORMATION
  Report Type: Spontaneous
  Country: US (occurrence: US)
  Receive Date: 20170821
  Receipt Date: 20170821
  Transmission Date: 20171127
  Serious: No
  Sender: FDA-Public Use
  Company Number: US-ROCHE-756499

PATIENT
  Age: 35 Year
  Sex: Female
  Weight: 90.3 kg

DRUGS (11)
  1. ACTEMRA [Suspect]
     Active Substance: TOCILIZUMAB
     Dosage: FORM: INFUSION, STARTING DOSE: 4 MG/KG?INFUSION WAS STOPPED WHEN 20 CC REMAINED
     Route: 042
     Dates: start: 20110125, end: 20110125
  2. FISH OIL [Concomitant]
     Active Substance: FISH OIL
     Dosage: FISH OIL (OMEGA-3 FATTY ACIDS)
     Route: 065
  3. AMBIEN [Concomitant]
     Active Substance: ZOLPIDEM TARTRATE
     Dosage: 1 TABLET EVERY BEDTIME (QHS)
     Route: 048
  4. OSSOPAN [Concomitant]
     Dosage: DRUG REPORTED AS: OSSOPAN CALCIUM
     Route: 065
  5. ARAVA [Concomitant]
     Active Substance: LEFLUNOMIDE
     Route: 065
  6. VICODIN [Concomitant]
     Active Substance: ACETAMINOPHEN\HYDROCODONE BITARTRATE
     Indication: PAIN
     Dosage: HYDROCODONE/PARACETAMOL: 5/500 MG; 1-2 TABLETS TWICE A DAY, PRN
     Route: 065
  7. CALCIUM [Concomitant]
     Active Substance: CALCIUM
     Dosage: CALCIUM/MAGNESIUM CITRATE: 250-125 MG TABLETS
     Route: 065
  8. MAGNESIUM CITRATE. [Concomitant]
     Active Substance: MAGNESIUM CITRATE
     Dosage: CALCIUM/MAGNESIUM CITRATE: 250-125 MG TABLETS
     Route: 065
  9. ACTEMRA [Suspect]
     Active Substance: TOCILIZUMAB
     Indication: RHEUMATOID ARTHRITIS
     Dosage: STARTING DOSE: 4 MG/KG
     Route: 042
  10. TYLENOL [Concomitant]
     Active Substance: ACETAMINOPHEN
     Dosage: TABLETS TO CHEW, PRN
     Route: 048
  11. ALPRAZOLAM. [Concomitant]
     Active Substance: ALPRAZOLAM
     Dosage: 0.25 MG TABLET DISPERSIBLE (TBDP), PRN
     Route: 065

REACTIONS (11)
  - Blood pressure increased [Recovering/Resolving]
  - Paraesthesia oral [Not Recovered/Not Resolved]
  - Hyperhidrosis [Not Recovered/Not Resolved]
  - Palpitations [Recovered/Resolved]
  - Pharyngeal disorder [Recovered/Resolved]
  - Dizziness [Recovered/Resolved]
  - Dizziness [Recovering/Resolving]
  - Tremor [Recovered/Resolved]
  - Paraesthesia [Not Recovered/Not Resolved]
  - Dyspnoea [Not Recovered/Not Resolved]
  - Heart rate increased [Not Recovered/Not Resolved]

NARRATIVE: CASE EVENT DATE: 20010125
